FAERS Safety Report 17596030 (Version 2)
Quarter: 2020Q2

REPORT INFORMATION
  Report Type: Spontaneous
  Country: US (occurrence: US)
  Receive Date: 20200330
  Receipt Date: 20200529
  Transmission Date: 20200713
  Serious: Yes (Hospitalization)
  Sender: FDA-Public Use
  Company Number: US-ALEXION PHARMACEUTICALS INC-A202004275

PATIENT
  Age: 7 Year
  Sex: Female

DRUGS (2)
  1. NUTROPIN [Concomitant]
     Active Substance: SOMATROPIN
     Indication: PRODUCT USED FOR UNKNOWN INDICATION
     Dosage: UNK
     Route: 065
  2. STRENSIQ [Suspect]
     Active Substance: ASFOTASE ALFA
     Indication: HYPOPHOSPHATASIA
     Dosage: 40 MG, TIW
     Route: 065
     Dates: start: 201603

REACTIONS (5)
  - Limb deformity [Not Recovered/Not Resolved]
  - Learning disorder [Not Recovered/Not Resolved]
  - Limb operation [Recovered/Resolved]
  - Fatigue [Not Recovered/Not Resolved]
  - Limb injury [Recovered/Resolved]

NARRATIVE: CASE EVENT DATE: 201805
